FAERS Safety Report 6680657-5 (Version None)
Quarter: 2010Q2

REPORT INFORMATION
  Report Type: 
  Country: None (occurrence: None)
  Receive Date: 20100414
  Receipt Date: 20100401
  Transmission Date: 20101027
  Serious: No
  Sender: FDA-Public Use
  Company Number: US-JNJFOC-20100401167

PATIENT
  Sex: Female
  Weight: 40.82 kg

DRUGS (1)
  1. DURAGESIC-100 [Suspect]
     Indication: RADICULAR PAIN
     Route: 062

REACTIONS (1)
  - TREATMENT NONCOMPLIANCE [None]
